FAERS Safety Report 6633815-X (Version None)
Quarter: 2010Q1

REPORT INFORMATION
  Report Type: 
  Country: None (occurrence: None)
  Receive Date: 20100315
  Receipt Date: 20100305
  Transmission Date: 20100710
  Serious: No
  Sender: FDA-Public Use
  Company Number: US-BAYER-201015955NA

PATIENT
  Age: 24 Year
  Sex: Female

DRUGS (1)
  1. MIRENA [Suspect]
     Indication: CONTRACEPTION
     Dosage: FREQUENCY: CONTINUOUS
     Route: 015
     Dates: start: 20050101

REACTIONS (7)
  - AMENORRHOEA [None]
  - FATIGUE [None]
  - HYPOMENORRHOEA [None]
  - MENSTRUATION IRREGULAR [None]
  - PELVIC PAIN [None]
  - SOMNOLENCE [None]
  - VAGINAL DISCHARGE [None]
